FAERS Safety Report 5070059-X (Version None)
Quarter: 2006Q3

REPORT INFORMATION
  Report Type: 
  Country: None (occurrence: None)
  Receive Date: 20060731
  Receipt Date: 20060720
  Transmission Date: 20061208
  Serious: Yes (Life-Threatening)
  Sender: FDA-Public Use
  Company Number: 2006-145733-NL

PATIENT
  Age: 3 Year
  Sex: Male

DRUGS (6)
  1. ROCURONIUM BROMIDE [Suspect]
     Indication: ANAESTHESIA
     Route: 042
     Dates: start: 20060517
  2. PROPOFOL [Suspect]
     Indication: SEDATION
     Dosage: 20 QG Q1HR
     Route: 042
     Dates: start: 20060517, end: 20060518
  3. ATRACURIUM BESYLATE [Suspect]
     Indication: ANAESTHESIA
     Route: 042
     Dates: start: 20060517
  4. CEFAZOLIN SODIUM [Suspect]
     Indication: PROPHYLAXIS
     Dosage: 1 G ONCE
     Route: 042
     Dates: start: 20060517
  5. MORPHINE SULFATE [Suspect]
     Indication: ANAESTHESIA
     Dosage: 15 UG Q1HR
     Route: 042
     Dates: start: 20060517
  6. FENTANYL [Suspect]
     Indication: ANAESTHESIA
     Route: 042
     Dates: start: 20060517

REACTIONS (5)
  - BLOOD CREATINE PHOSPHOKINASE INCREASED [None]
  - HEPATIC FUNCTION ABNORMAL [None]
  - MYOGLOBINURIA [None]
  - RENAL IMPAIRMENT [None]
  - RHABDOMYOLYSIS [None]
